FAERS Safety Report 9225787 (Version 2)
Quarter: 2013Q2

REPORT INFORMATION
  Report Type: Report from Study
  Country: ES (occurrence: ES)
  Receive Date: 20130411
  Receipt Date: 20130423
  Transmission Date: 20140414
  Serious: Yes (Other)
  Sender: FDA-Public Use
  Company Number: ES-ROCHE-1208750

PATIENT
  Age: 83 Year
  Sex: Male

DRUGS (2)
  1. ALTEPLASE [Suspect]
     Indication: AGE-RELATED MACULAR DEGENERATION
     Route: 050
  2. BEVACIZUMAB [Suspect]
     Indication: AGE-RELATED MACULAR DEGENERATION
     Route: 050

REACTIONS (1)
  - Retinal pigment epithelial tear [Unknown]
